FAERS Safety Report 7252512-3 (Version None)
Quarter: 2011Q1

REPORT INFORMATION
  Report Type: 
  Country: None (occurrence: None)
  Receive Date: 20110129
  Receipt Date: 20100217
  Transmission Date: 20110831
  Serious: No
  Sender: FDA-Public Use
  Company Number: US-ABBOTT-10P-163-0619805-00

PATIENT
  Sex: Female
  Weight: 59.02 kg

DRUGS (4)
  1. HUMIRA [Suspect]
     Dates: start: 20091101
  2. UNKNOWN CHOLESTEROL MEDICINE [Concomitant]
     Indication: HYPERCHOLESTEROLAEMIA
  3. LORTAB [Suspect]
     Indication: PAIN
  4. HUMIRA [Suspect]
     Indication: RHEUMATOID ARTHRITIS
     Dates: start: 20081201, end: 20091101

REACTIONS (8)
  - PYREXIA [None]
  - VOMITING [None]
  - DIZZINESS [None]
  - WEIGHT DECREASED [None]
  - PRURITUS [None]
  - DRY SKIN [None]
  - HYPERHIDROSIS [None]
  - PAIN [None]
